FAERS Safety Report 24546800 (Version 1)
Quarter: 2024Q4

REPORT INFORMATION
  Report Type: Report from Study
  Country: DE (occurrence: DE)
  Receive Date: 20241024
  Receipt Date: 20241024
  Transmission Date: 20250114
  Serious: Yes (Other)
  Sender: ABBVIE
  Company Number: DE-JNJFOC-20241051929

PATIENT
  Age: 68 Year
  Sex: Male

DRUGS (3)
  1. DEXAMETHASONE [Suspect]
     Active Substance: DEXAMETHASONE
     Indication: Plasma cell myeloma
     Route: 065
     Dates: start: 2021, end: 202210
  2. DARZALEX [Suspect]
     Active Substance: DARATUMUMAB
     Indication: Plasma cell myeloma
     Route: 065
     Dates: start: 2021, end: 202210
  3. POMALIDOMIDE [Suspect]
     Active Substance: POMALIDOMIDE
     Indication: Plasma cell myeloma
     Route: 065
     Dates: start: 2021, end: 202210

REACTIONS (2)
  - Therapeutic product effect decreased [Unknown]
  - Therapeutic product effect decreased [Unknown]
